FAERS Safety Report 10168846 (Version 1)
Quarter: 2014Q2

REPORT INFORMATION
  Report Type: Spontaneous
  Country: QA (occurrence: None)
  Receive Date: 20140509
  Receipt Date: 20140509
  Transmission Date: 20141212
  Serious: Yes (Hospitalization)
  Sender: FDA-Public Use
  Company Number: FK201401621

PATIENT
  Age: 75 Year
  Sex: Female

DRUGS (8)
  1. HYDRALAZINE [Suspect]
     Indication: PRODUCT USED FOR UNKNOWN INDICATION
  2. POTASSIUM CHLORIDE [Concomitant]
  3. NIFEDIPINE [Concomitant]
  4. METOPROLOL [Concomitant]
  5. PERINDOPRIL [Concomitant]
  6. ISOSORBIDE DINITRATE [Concomitant]
  7. AMLODIPINE [Concomitant]
  8. VALPROIC ACID [Concomitant]

REACTIONS (1)
  - Toxic epidermal necrolysis [None]
